FAERS Safety Report 24580491 (Version 3)
Quarter: 2024Q4

REPORT INFORMATION
  Report Type: Report from Study
  Country: US (occurrence: US)
  Receive Date: 20241105
  Receipt Date: 20241128
  Transmission Date: 20250115
  Serious: Yes (Other)
  Sender: ROCHE
  Company Number: US-ROCHE-10000111357

PATIENT
  Age: 35 Year
  Sex: Female

DRUGS (9)
  1. OCREVUS [Suspect]
     Active Substance: OCRELIZUMAB
     Indication: Multiple sclerosis
     Dosage: DATE OF SERVICE: 29JUL/2022
     Route: 065
     Dates: start: 20191021
  2. MAGNESIUM [Concomitant]
     Active Substance: MAGNESIUM
     Route: 048
     Dates: start: 20210625
  3. VITAMIN D [Concomitant]
     Active Substance: VITAMIN D NOS
     Route: 048
  4. COPAXONE [Concomitant]
     Active Substance: GLATIRAMER ACETATE
  5. TECFIDERA [Concomitant]
     Active Substance: DIMETHYL FUMARATE
  6. PROBIOTICS NOS [Concomitant]
     Active Substance: PROBIOTICS NOS
  7. VALTREX [Concomitant]
     Active Substance: VALACYCLOVIR HYDROCHLORIDE
  8. VITAMIN D3 [Concomitant]
     Active Substance: CHOLECALCIFEROL
  9. ADDERALL [Concomitant]
     Active Substance: AMPHETAMINE ASPARTATE\AMPHETAMINE SULFATE\DEXTROAMPHETAMINE SACCHARATE\DEXTROAMPHETAMINE SULFATE

REACTIONS (9)
  - Abortion spontaneous [Unknown]
  - Maternal exposure before pregnancy [Unknown]
  - Fungal infection [Unknown]
  - Flushing [Recovered/Resolved]
  - Headache [Unknown]
  - Hypothyroidism [Unknown]
  - Herpes zoster [Unknown]
  - Vitamin D deficiency [Unknown]
  - Meralgia paraesthetica [Recovered/Resolved]

NARRATIVE: CASE EVENT DATE: 20200127
